FAERS Safety Report 5903858-X (Version None)
Quarter: 2008Q3

REPORT INFORMATION
  Report Type: 
  Country: None (occurrence: None)
  Receive Date: 20080930
  Receipt Date: 20080918
  Transmission Date: 20090109
  Serious: Yes (Other)
  Sender: FDA-Public Use
  Company Number: US-ELI_LILLY_AND_COMPANY-US200809004889

PATIENT
  Sex: Female
  Weight: 31.8 kg

DRUGS (4)
  1. HUMATROPE [Suspect]
     Indication: GROWTH RETARDATION
     Dosage: 0.7 MG, DAILY (1/D)
     Route: 058
     Dates: start: 20071212, end: 20080917
  2. LEVOXYL [Concomitant]
     Indication: HYPOTHYROIDISM
     Dates: start: 20060707
  3. CLARITIN [Concomitant]
     Indication: SEASONAL ALLERGY
     Dates: start: 20080917
  4. ADDERALL XR 30 [Concomitant]
     Indication: ATTENTION DEFICIT/HYPERACTIVITY DISORDER
     Dates: start: 20061016

REACTIONS (1)
  - BLOOD CREATINE PHOSPHOKINASE INCREASED [None]
